FAERS Safety Report 12899952 (Version 2)
Quarter: 2016Q4

REPORT INFORMATION
  Report Type: Report from Study
  Country: TH (occurrence: VN)
  Receive Date: 20161101
  Receipt Date: 20161104
  Transmission Date: 20170207
  Serious: Yes (Death, Other)
  Sender: FDA-Public Use
  Company Number: TH-009507513-1610THA013248

PATIENT
  Age: 66 Year
  Sex: Male

DRUGS (1)
  1. FOSAMAX PLUS D [Suspect]
     Active Substance: ALENDRONATE SODIUM\CHOLECALCIFEROL
     Indication: OSTEOPOROSIS
     Dosage: STRENGTH 2800 (UINT UPSPECIFIED), ONE TABLET, ONCE A WEEK
     Route: 048
     Dates: start: 20151201

REACTIONS (1)
  - Neoplasm malignant [Fatal]
